FAERS Safety Report 9630275 (Version 2)
Quarter: 2013Q4

REPORT INFORMATION
  Report Type: Spontaneous
  Country: GB (occurrence: GB)
  Receive Date: 20131017
  Receipt Date: 20131017
  Transmission Date: 20140711
  Serious: Yes (Other)
  Sender: FDA-Public Use
  Company Number: GB-PFIZER INC-2012170249

PATIENT
  Sex: Female

DRUGS (2)
  1. PHENYTOIN [Suspect]
     Indication: NERVOUS SYSTEM DISORDER
     Dosage: UNK
  2. ZELBORAF [Interacting]
     Indication: MALIGNANT MELANOMA
     Dosage: 960 UNK, 2X/DAY

REACTIONS (3)
  - Drug interaction [Unknown]
  - Convulsion [Unknown]
  - Condition aggravated [Unknown]
